FAERS Safety Report 5432358-9 (Version None)
Quarter: 2007Q3

REPORT INFORMATION
  Report Type: 
  Country: None (occurrence: None)
  Receive Date: 20070831
  Receipt Date: 20070626
  Transmission Date: 20080115
  Serious: No
  Sender: FDA-Public Use
  Company Number: A0659814A

PATIENT
  Age: 58 Year
  Sex: Female

DRUGS (1)
  1. ALLI [Suspect]
     Dates: start: 20070620, end: 20070623

REACTIONS (8)
  - ANOREXIA [None]
  - DIZZINESS [None]
  - FATIGUE [None]
  - HEADACHE [None]
  - MALAISE [None]
  - MUSCULAR WEAKNESS [None]
  - NAUSEA [None]
  - VOMITING [None]
